FAERS Safety Report 9715287 (Version 4)
Quarter: 2014Q2

REPORT INFORMATION
  Report Type: Report from Study
  Country: GB (occurrence: GB)
  Receive Date: 20131127
  Receipt Date: 20140605
  Transmission Date: 20141212
  Serious: Yes (Hospitalization, Other)
  Sender: FDA-Public Use
  Company Number: GB-ROCHE-1288564

PATIENT
  Age: 72 Year
  Sex: Male

DRUGS (5)
  1. RANIBIZUMAB [Suspect]
     Indication: AGE-RELATED MACULAR DEGENERATION
     Dosage: 13/APR/2012, 22/MAY/2012 AND 14/AUG/2013 (LATEST DOSE)
     Route: 050
     Dates: start: 20111018
  2. METFORMIN [Concomitant]
     Indication: DIABETES MELLITUS
  3. LISINOPRIL [Concomitant]
     Indication: HYPERTENSION
  4. FUROSEMIDE [Concomitant]
     Indication: HYPERTENSION
  5. DOXAZOSIN [Concomitant]
     Indication: HYPERTENSION

REACTIONS (4)
  - Cerebrovascular accident [Recovering/Resolving]
  - Atrial fibrillation [Not Recovered/Not Resolved]
  - Cerebrovascular disorder [Not Recovered/Not Resolved]
  - Atrial flutter [Recovered/Resolved]
